FAERS Safety Report 11110030 (Version 1)
Quarter: 2015Q2

REPORT INFORMATION
  Report Type: Spontaneous
  Country: US (occurrence: None)
  Receive Date: 20150512
  Receipt Date: 20150512
  Transmission Date: 20150821
  Serious: No
  Sender: FDA-Public Use
  Company Number: None

PATIENT
  Age: 55 Year
  Sex: Female
  Weight: 72.58 kg

DRUGS (5)
  1. CREST PRO-HEALTH COMPLETE (CLEAN MINT) [Suspect]
     Active Substance: SODIUM FLUORIDE
     Indication: DENTAL CARE
     Dates: start: 20150119, end: 20150506
  2. VALTREX [Concomitant]
     Active Substance: VALACYCLOVIR HYDROCHLORIDE
  3. GLOCOSOMINE [Concomitant]
  4. CALCIUM [Concomitant]
     Active Substance: CALCIUM
  5. WOMEN^S MULTI-VITAMIN [Concomitant]

REACTIONS (1)
  - Tooth discolouration [None]

NARRATIVE: CASE EVENT DATE: 20150507
